FAERS Safety Report 21943604 (Version 1)
Quarter: 2023Q1

REPORT INFORMATION
  Report Type: Other
  Country: CZ (occurrence: None)
  Receive Date: 20230202
  Receipt Date: 20230202
  Transmission Date: 20230418
  Serious: Yes (Other)
  Sender: FDA-Public Use
  Company Number: CZ-ROCHE-3274006

PATIENT
  Age: 76 Year
  Sex: Male

DRUGS (17)
  1. BEVACIZUMAB [Suspect]
     Active Substance: BEVACIZUMAB
     Indication: Colorectal cancer
     Route: 065
     Dates: start: 2011
  2. BEVACIZUMAB [Suspect]
     Active Substance: BEVACIZUMAB
     Route: 065
     Dates: start: 2015
  3. BEVACIZUMAB [Suspect]
     Active Substance: BEVACIZUMAB
     Dosage: 5 REDUCED CYCLES OF BEVACIZUMAB + FUFA
     Route: 065
  4. FLUOROURACIL [Suspect]
     Active Substance: FLUOROURACIL
     Indication: Colorectal cancer
     Route: 065
     Dates: end: 200910
  5. FLUOROURACIL [Suspect]
     Active Substance: FLUOROURACIL
     Route: 065
     Dates: start: 2011
  6. FLUOROURACIL [Suspect]
     Active Substance: FLUOROURACIL
     Route: 065
     Dates: start: 2015
  7. FLUOROURACIL [Suspect]
     Active Substance: FLUOROURACIL
     Dosage: 5 REDUCED CYCLES OF BEVACIZUMAB + FUFA
     Route: 065
  8. LEUCOVORIN [Suspect]
     Active Substance: LEUCOVORIN
     Indication: Colorectal cancer
     Route: 065
     Dates: start: 2011
  9. LEUCOVORIN [Suspect]
     Active Substance: LEUCOVORIN
     Route: 065
     Dates: start: 2015
  10. LEUCOVORIN [Suspect]
     Active Substance: LEUCOVORIN
     Dosage: 5 REDUCED CYCLES OF BEVACIZUMAB + FUFA
     Route: 065
  11. IRINOTECAN [Suspect]
     Active Substance: IRINOTECAN
     Indication: Colorectal cancer
     Route: 065
     Dates: start: 2011
  12. IRINOTECAN [Suspect]
     Active Substance: IRINOTECAN
     Route: 065
     Dates: start: 2015
  13. LEUCOVORIN [Concomitant]
     Active Substance: LEUCOVORIN
     Dates: end: 200910
  14. OXALIPLATIN [Concomitant]
     Active Substance: OXALIPLATIN
     Dates: end: 200910
  15. AFLIBERCEPT [Concomitant]
     Active Substance: AFLIBERCEPT
     Dates: end: 201904
  16. TIPIRACIL HYDROCHLORIDE\TRIFLURIDINE [Concomitant]
     Active Substance: TIPIRACIL HYDROCHLORIDE\TRIFLURIDINE
  17. REGORAFENIB [Concomitant]
     Active Substance: REGORAFENIB
     Dates: start: 202004

REACTIONS (5)
  - Disease progression [Unknown]
  - Diabetic metabolic decompensation [Unknown]
  - Metastases to liver [Unknown]
  - Metastases to lung [Unknown]
  - Hypertension [Unknown]

NARRATIVE: CASE EVENT DATE: 20170701
